FAERS Safety Report 13244921 (Version 3)
Quarter: 2017Q1

REPORT INFORMATION
  Report Type: Spontaneous
  Country: US (occurrence: US)
  Receive Date: 20170217
  Receipt Date: 20170307
  Transmission Date: 20170428
  Serious: Yes (Hospitalization, Other)
  Sender: FDA-Public Use
  Company Number: US-LUNDBECK-DKLU2025925

PATIENT
  Age: 86 Year
  Sex: Male
  Weight: 72 kg

DRUGS (7)
  1. AMIODARONE [Concomitant]
     Active Substance: AMIODARONE
     Indication: PRODUCT USED FOR UNKNOWN INDICATION
     Route: 048
  2. LANTUS [Concomitant]
     Active Substance: INSULIN GLARGINE
     Indication: DIABETES MELLITUS
     Dosage: 10 UNITS
     Route: 065
  3. NORTHERA [Suspect]
     Active Substance: DROXIDOPA
     Indication: AUTONOMIC NEUROPATHY
     Dosage: SCHEDULE B AND TITRATING
     Route: 048
     Dates: start: 20170120, end: 20170131
  4. LANTUS [Concomitant]
     Active Substance: INSULIN GLARGINE
     Dosage: 8 UNITS
     Route: 065
  5. NITROGLYCERIN. [Concomitant]
     Active Substance: NITROGLYCERIN
     Indication: PRODUCT USED FOR UNKNOWN INDICATION
     Route: 060
  6. NORTHERA [Suspect]
     Active Substance: DROXIDOPA
     Indication: AUTONOMIC FAILURE SYNDROME
     Route: 048
     Dates: start: 20170120
  7. NORTHERA [Suspect]
     Active Substance: DROXIDOPA
     Indication: ORTHOSTATIC HYPOTENSION

REACTIONS (11)
  - Orthostatic hypotension [Recovered/Resolved]
  - Confusional state [Recovered/Resolved]
  - Acute kidney injury [Unknown]
  - Diabetic ketoacidosis [Recovered/Resolved]
  - Condition aggravated [Recovering/Resolving]
  - Feeling abnormal [Recovered/Resolved]
  - Hyperkalaemia [Recovered/Resolved]
  - Cerebral infarction [Unknown]
  - Encephalopathy [Recovering/Resolving]
  - Atrial fibrillation [Unknown]
  - Hypertension [Recovered/Resolved]

NARRATIVE: CASE EVENT DATE: 201701
